FAERS Safety Report 6370970-3 (Version None)
Quarter: 2009Q3

REPORT INFORMATION
  Report Type: 
  Country: None (occurrence: None)
  Receive Date: 20090923
  Receipt Date: 20070925
  Transmission Date: 20100115
  Serious: Yes (Other)
  Sender: FDA-Public Use
  Company Number: US-ASTRAZENECA-2006UW22667

PATIENT
  Age: 572 Month
  Sex: Female
  Weight: 75.1 kg

DRUGS (28)
  1. SEROQUEL [Suspect]
     Indication: DEPRESSION
     Dosage: 50-600MG
     Route: 048
     Dates: start: 20050519
  2. SEROQUEL [Suspect]
     Indication: INSOMNIA
     Dosage: 50-600MG
     Route: 048
     Dates: start: 20050519
  3. SEROQUEL [Suspect]
     Route: 048
     Dates: start: 20050501
  4. SEROQUEL [Suspect]
     Route: 048
     Dates: start: 20050501
  5. ZYPREXA [Concomitant]
  6. DEXATRIM [Concomitant]
  7. TRIMSPA [Concomitant]
  8. ALBUTEROL [Concomitant]
  9. FLEXERIL [Concomitant]
  10. LOVASTATIN [Concomitant]
  11. LISINOPRIL [Concomitant]
  12. VISTARIL [Concomitant]
  13. PROZAC [Concomitant]
  14. ULTRAM [Concomitant]
  15. NICODERM [Concomitant]
  16. METOPROLOL TARTRATE [Concomitant]
  17. NAPROXEN [Concomitant]
  18. LASIX [Concomitant]
  19. MORPHINE [Concomitant]
  20. GLUCOPHAGE [Concomitant]
     Dates: end: 20070101
  21. SPIRONOLACTONE [Concomitant]
  22. ATENOLOL [Concomitant]
  23. NEURONTIN [Concomitant]
  24. MIRALAX [Concomitant]
  25. ASPIRIN [Concomitant]
  26. OXYCODONE [Concomitant]
  27. DILAUDID [Concomitant]
  28. TOPAMAX [Concomitant]
     Dates: start: 20040113

REACTIONS (2)
  - DIABETES MELLITUS [None]
  - HYPOGLYCAEMIA [None]
